FAERS Safety Report 7486404-1 (Version None)
Quarter: 2011Q2

REPORT INFORMATION
  Report Type: 
  Country: None (occurrence: None)
  Receive Date: 20110517
  Receipt Date: 20110428
  Transmission Date: 20111010
  Serious: No
  Sender: FDA-Public Use
  Company Number: US-B.I. PHARMACEUTICALS,INC./RIDGEFIELD-2011-BP-05680BP

PATIENT
  Sex: Female

DRUGS (13)
  1. ZYRTEC [Concomitant]
     Indication: MULTIPLE ALLERGIES
     Route: 048
  2. CALCIUM +D [Concomitant]
     Indication: SUPPLEMENTATION THERAPY
     Dosage: 1200 MG
     Route: 048
  3. VIT D [Concomitant]
     Indication: SUPPLEMENTATION THERAPY
     Dosage: 1000 MG
     Route: 048
  4. ONE-A-DAY [Concomitant]
     Indication: SUPPLEMENTATION THERAPY
     Route: 048
  5. METOPROLOL SUCCINATE [Concomitant]
     Indication: ATRIAL FIBRILLATION
     Dosage: 50 MG
     Route: 048
     Dates: start: 20101101
  6. PROAIR HFA [Concomitant]
     Indication: DYSPNOEA
     Route: 055
     Dates: start: 20110201
  7. M.V.I. [Concomitant]
     Indication: GENERAL PHYSICAL HEALTH DETERIORATION
     Route: 048
  8. CITALOPRAM HYDROBROMIDE [Concomitant]
     Indication: ANXIETY
     Dosage: 20 MG
     Route: 048
     Dates: start: 20080101
  9. FOSAMAX [Concomitant]
     Indication: OSTEOPOROSIS
     Route: 048
     Dates: start: 19950101
  10. PATADAY DROPS [Concomitant]
     Indication: MULTIPLE ALLERGIES
     Route: 061
  11. PRADAXA [Suspect]
     Indication: ATRIAL FIBRILLATION
     Dosage: 300 MG
     Route: 048
     Dates: start: 20110223
  12. ANTIDEPRESSANT [Concomitant]
     Indication: DEPRESSION
     Route: 048
  13. CALCIUM [Concomitant]
     Indication: ROUTINE HEALTH MAINTENANCE
     Dosage: 1200 MG
     Route: 048

REACTIONS (3)
  - HOT FLUSH [None]
  - DIZZINESS [None]
  - ABDOMINAL DISCOMFORT [None]
